FAERS Safety Report 24605706 (Version 1)
Quarter: 2024Q4

REPORT INFORMATION
  Report Type: Report from Study
  Country: US (occurrence: US)
  Receive Date: 20241111
  Receipt Date: 20241111
  Transmission Date: 20250115
  Serious: Yes (Hospitalization)
  Sender: GILEAD
  Company Number: US-GILEAD-2024-0693447

PATIENT
  Sex: Male

DRUGS (15)
  1. AZTREONAM LYSINE [Suspect]
     Active Substance: AZTREONAM LYSINE
     Indication: Cystic fibrosis lung
     Dosage: 75 MG, TID (ALTERNATING WITH COLISTIN EVERY 28 DAYS ON AND 28 DAYS OFF)
     Route: 055
  2. ANDROGEL [Concomitant]
     Active Substance: TESTOSTERONE
  3. PREDNISONE [Concomitant]
     Active Substance: PREDNISONE
  4. TOBI [Concomitant]
     Active Substance: TOBRAMYCIN
  5. LANTUS [Concomitant]
     Active Substance: INSULIN GLARGINE
  6. ATORVASTATIN [Concomitant]
     Active Substance: ATORVASTATIN
  7. NOVOLOG [Concomitant]
     Active Substance: INSULIN ASPART
  8. AZITHROMYCIN [Concomitant]
     Active Substance: AZITHROMYCIN
  9. LEVOTHYROXINE [Concomitant]
     Active Substance: LEVOTHYROXINE
  10. HYDRALAZINE [Concomitant]
     Active Substance: HYDRALAZINE HYDROCHLORIDE
  11. AMLODIPINE [Concomitant]
     Active Substance: AMLODIPINE BESYLATE
  12. METOPROLOL [Concomitant]
     Active Substance: METOPROLOL
  13. TRIKAFTA [Concomitant]
     Active Substance: ELEXACAFTOR\IVACAFTOR\TEZACAFTOR
  14. SIROLIMUS [Concomitant]
     Active Substance: SIROLIMUS
  15. COLISTIN [Concomitant]
     Active Substance: COLISTIN

REACTIONS (1)
  - Abdominal exploration [Recovered/Resolved]
